FAERS Safety Report 17352815 (Version 1)
Quarter: 2020Q1

REPORT INFORMATION
  Report Type: Report from Study
  Country: None (occurrence: TN)
  Receive Date: 20200131
  Receipt Date: 20200131
  Transmission Date: 20200409
  Serious: Yes (Hospitalization)
  Sender: FDA-Public Use
  Company Number: TN-ABBVIE-20K-160-3255865-00

PATIENT
  Age: 28 Year
  Sex: Male

DRUGS (4)
  1. IMUREL [Concomitant]
     Active Substance: AZATHIOPRINE SODIUM
     Indication: CROHN^S DISEASE
     Route: 048
  2. HUMIRA [Suspect]
     Active Substance: ADALIMUMAB
     Dosage: 80MG LOADING DOSE
     Route: 058
     Dates: start: 20180713, end: 20180713
  3. HUMIRA [Suspect]
     Active Substance: ADALIMUMAB
     Route: 058
     Dates: start: 20180727
  4. HUMIRA [Suspect]
     Active Substance: ADALIMUMAB
     Indication: CROHN^S DISEASE
     Dosage: 160MG LOADING DOSE
     Route: 058
     Dates: start: 20180629, end: 20180629

REACTIONS (3)
  - Iron deficiency [Recovering/Resolving]
  - Gastrointestinal injury [Recovering/Resolving]
  - Calcium deficiency [Recovering/Resolving]

NARRATIVE: CASE EVENT DATE: 201909
